FAERS Safety Report 20622670 (Version 1)
Quarter: 2022Q1

REPORT INFORMATION
  Report Type: Spontaneous
  Country: CA (occurrence: CA)
  Receive Date: 20220322
  Receipt Date: 20220322
  Transmission Date: 20220423
  Serious: Yes (Hospitalization)
  Sender: FDA-Public Use
  Company Number: CA-PFIZER INC-202200402216

PATIENT
  Age: 4 Year
  Sex: Male

DRUGS (2)
  1. DEFEROXAMINE MESYLATE [Suspect]
     Active Substance: DEFEROXAMINE MESYLATE
     Dosage: UNK
  2. DEFERASIROX [Suspect]
     Active Substance: DEFERASIROX
     Dosage: UNK

REACTIONS (5)
  - Ascites [Unknown]
  - Blood albumin decreased [Unknown]
  - International normalised ratio increased [Unknown]
  - Iron overload [Unknown]
  - Liver disorder [Unknown]
